FAERS Safety Report 8256756-3 (Version None)
Quarter: 2012Q2

REPORT INFORMATION
  Report Type: 
  Country: None (occurrence: None)
  Receive Date: 20120403
  Receipt Date: 20120329
  Transmission Date: 20120825
  Serious: Yes (Other)
  Sender: FDA-Public Use
  Company Number: CH-PFIZER INC-2012081030

PATIENT
  Age: 51 Year
  Sex: Female

DRUGS (2)
  1. LYRICA [Suspect]
     Dosage: 75 MG, 2X/DAY
  2. METHADONE HCL [Interacting]
     Dosage: 150 MG, 2X/DAY
     Dates: start: 20060101

REACTIONS (6)
  - DEPRESSION [None]
  - ABDOMINAL PAIN [None]
  - RESTLESSNESS [None]
  - SUICIDAL IDEATION [None]
  - INSOMNIA [None]
  - DRUG INTERACTION [None]
